FAERS Safety Report 18706284 (Version 2)
Quarter: 2021Q1

REPORT INFORMATION
  Report Type: Report from Study
  Country: AR (occurrence: AR)
  Receive Date: 20210106
  Receipt Date: 20210120
  Transmission Date: 20210419
  Serious: Yes (Other)
  Sender: FDA-Public Use
  Company Number: NVSC2020AR348014

PATIENT
  Sex: Male

DRUGS (4)
  1. HUMIRA [Suspect]
     Active Substance: ADALIMUMAB
     Indication: PRODUCT USED FOR UNKNOWN INDICATION
     Dosage: UNK
     Route: 065
  2. INVEGA [Concomitant]
     Active Substance: PALIPERIDONE
     Indication: DEPRESSION
     Dosage: UNK (CONSUMED IT 6 MONTHS AGO)
     Route: 065
  3. VALCOTE [Concomitant]
     Active Substance: VALPROATE SODIUM
     Indication: DEPRESSION
     Dosage: UNK (CONSUMED FROM PATIENT^S 17 YEARS OF AGE)
     Route: 048
  4. COSENTYX [Suspect]
     Active Substance: SECUKINUMAB
     Indication: PSORIASIS
     Dosage: 140 MG, QMO (STOPPED 2 YEARS AGO)
     Route: 058
     Dates: start: 20171107

REACTIONS (7)
  - Concomitant disease aggravated [Unknown]
  - Psoriasis [Unknown]
  - Incorrect dose administered [Unknown]
  - Drug ineffective [Unknown]
  - Pain [Unknown]
  - Deafness [Unknown]
  - Skin exfoliation [Unknown]

NARRATIVE: CASE EVENT DATE: 2017
